FAERS Safety Report 10913377 (Version 5)
Quarter: 2015Q2

REPORT INFORMATION
  Report Type: Spontaneous
  Country: JP (occurrence: JP)
  Receive Date: 20150313
  Receipt Date: 20150516
  Transmission Date: 20150821
  Serious: Yes (Hospitalization, Other)
  Sender: FDA-Public Use
  Company Number: JP-009507513-1503JPN004037

PATIENT
  Age: 24 Year
  Sex: Female
  Weight: 53 kg

DRUGS (9)
  1. AMOXICILLIN. [Concomitant]
     Active Substance: AMOXICILLIN
     Indication: HEADACHE
  2. CALONAL [Concomitant]
     Active Substance: ACETAMINOPHEN
     Indication: HEADACHE
  3. AMOXICILLIN. [Concomitant]
     Active Substance: AMOXICILLIN
     Indication: PYREXIA
     Dosage: 1 DF, TID
     Route: 065
     Dates: start: 20150228, end: 20150301
  4. TEPRENONE [Concomitant]
     Active Substance: TEPRENONE
     Indication: PYREXIA
     Dosage: 1 DF, TID
     Route: 048
     Dates: start: 20150228, end: 20150301
  5. MARVELON [Suspect]
     Active Substance: DESOGESTREL\ETHINYL ESTRADIOL
     Indication: CONTRACEPTION
     Dosage: 1 TABLET ONCE A DAY
     Route: 048
     Dates: start: 20110426, end: 201502
  6. SALAZAC [Concomitant]
     Indication: PYREXIA
     Dosage: 1 G, TID
     Route: 048
     Dates: start: 20150228, end: 20150301
  7. TEPRENONE [Concomitant]
     Active Substance: TEPRENONE
     Indication: HEADACHE
  8. SALAZAC [Concomitant]
     Indication: HEADACHE
  9. CALONAL [Concomitant]
     Active Substance: ACETAMINOPHEN
     Indication: PYREXIA
     Dosage: 1 DF, TID
     Route: 048
     Dates: start: 20150228, end: 20150301

REACTIONS (7)
  - Intracranial venous sinus thrombosis [Recovered/Resolved]
  - Pyrexia [Recovered/Resolved]
  - Cerebral haemorrhage [Recovered/Resolved]
  - Hemianopia homonymous [Not Recovered/Not Resolved]
  - Cerebral venous thrombosis [Recovering/Resolving]
  - Headache [Recovered/Resolved]
  - Seizure [Recovering/Resolving]

NARRATIVE: CASE EVENT DATE: 20150227
